FAERS Safety Report 23083072 (Version 2)
Quarter: 2023Q4

REPORT INFORMATION
  Report Type: Spontaneous
  Country: US (occurrence: None)
  Receive Date: 20231019
  Receipt Date: 20231124
  Transmission Date: 20240110
  Serious: Yes (Other)
  Sender: FDA-Public Use
  Company Number: US-ROCHE-3439666

PATIENT
  Sex: Female
  Weight: 81.72 kg

DRUGS (2)
  1. RITUXAN [Suspect]
     Active Substance: RITUXIMAB
     Indication: Waldenstrom^s macroglobulinaemia
     Route: 065
  2. RUXIENCE [Suspect]
     Active Substance: RITUXIMAB-PVVR
     Indication: Waldenstrom^s macroglobulinaemia
     Route: 065
     Dates: start: 2023, end: 2023

REACTIONS (1)
  - Autoimmune haemolytic anaemia [Unknown]
